FAERS Safety Report 6301479-0 (Version None)
Quarter: 2009Q3

REPORT INFORMATION
  Report Type: 
  Country: None (occurrence: None)
  Receive Date: 20090807
  Receipt Date: 20090803
  Transmission Date: 20100115
  Serious: Yes (Other)
  Sender: FDA-Public Use
  Company Number: A0800132A

PATIENT
  Age: 45 Year
  Sex: Female

DRUGS (2)
  1. VERAMYST [Suspect]
     Indication: ILL-DEFINED DISORDER
     Route: 045
  2. NO CONCURRENT MEDICATION [Concomitant]

REACTIONS (4)
  - AGEUSIA [None]
  - ANOSMIA [None]
  - DYSGEUSIA [None]
  - PRODUCT QUALITY ISSUE [None]
